FAERS Safety Report 14432246 (Version 3)
Quarter: 2018Q1

REPORT INFORMATION
  Report Type: Spontaneous
  Country: DE (occurrence: DE)
  Receive Date: 20180124
  Receipt Date: 20180308
  Transmission Date: 20180509
  Serious: Yes (Hospitalization, Other)
  Sender: FDA-Public Use
  Company Number: DE-CONCORDIA PHARMACEUTICALS INC.-E2B_00009555

PATIENT
  Age: 78 Year
  Sex: Male
  Weight: 63.5 kg

DRUGS (8)
  1. ZYTIGA [Suspect]
     Active Substance: ABIRATERONE ACETATE
     Dosage: UNK
     Dates: start: 201507
  2. XOFIGO [Suspect]
     Active Substance: RADIUM RA-223 DICHLORIDE
     Indication: METASTASES TO BONE
     Dosage: UNK
  3. PREDNISOLONE. [Suspect]
     Active Substance: PREDNISOLONE
     Dosage: 10 MG, QD
  4. XOFIGO [Suspect]
     Active Substance: RADIUM RA-223 DICHLORIDE
     Indication: METASTASES TO BONE
     Dosage: 3.356 MBQ, ONCE; IN TOTAL
     Dates: start: 20170120, end: 20170120
  5. XOFIGO [Suspect]
     Active Substance: RADIUM RA-223 DICHLORIDE
     Indication: PROSTATE CANCER
     Dosage: 3239 MBQ, ONCE; IN TOTAL
     Dates: start: 20170216, end: 20170216
  6. ZOMETA [Suspect]
     Active Substance: ZOLEDRONIC ACID
  7. XARELTO [Concomitant]
     Active Substance: RIVAROXABAN
     Dosage: 10 MG, QD
  8. FENTANYL. [Concomitant]
     Active Substance: FENTANYL
     Dosage: 75 ?G, Q72HR

REACTIONS (5)
  - Arthralgia [Unknown]
  - Diarrhoea [Unknown]
  - Pelvic pain [Unknown]
  - Dyspnoea [Unknown]
  - Multiple fractures [Recovering/Resolving]

NARRATIVE: CASE EVENT DATE: 20170201
